FAERS Safety Report 4991504-1 (Version None)
Quarter: 2006Q2

REPORT INFORMATION
  Report Type: 
  Country: None (occurrence: None)
  Receive Date: 20060502
  Receipt Date: 20060419
  Transmission Date: 20061013
  Serious: Yes (Hospitalization)
  Sender: FDA-Public Use
  Company Number: GXKR2005IT01677

PATIENT
  Age: 90 Year
  Sex: Female

DRUGS (6)
  1. AMIODARONE HCL [Suspect]
     Indication: ARRHYTHMIA
     Dosage: 200 MG, ORAL
     Route: 048
     Dates: start: 20041030, end: 20050524
  2. RAMIPRIL [Suspect]
     Dosage: 1.25 MG, ORAL
     Route: 048
     Dates: start: 20041030, end: 20050501
  3. SPIROFUR (FUROSEMIDE, SPIRONOLACTONE) [Suspect]
     Dosage: 1 IU IN MILLION, QOD, ORAL
     Route: 048
     Dates: start: 20040418, end: 20050314
  4. ASCRIPTIN (ACETYLSALICYLIC ACID, ALUMINUM  HYDROXIDE, MAGNESIUM HYDROX [Suspect]
  5. CORDARONE [Suspect]
  6. NORVASC [Concomitant]

REACTIONS (10)
  - AORTIC VALVE INCOMPETENCE [None]
  - AORTIC VALVE SCLEROSIS [None]
  - ASTHENIA [None]
  - BALANCE DISORDER [None]
  - BLOOD CREATININE INCREASED [None]
  - BLOOD POTASSIUM INCREASED [None]
  - BLOOD THYROID STIMULATING HORMONE INCREASED [None]
  - HYPOTHYROIDISM [None]
  - POSTURE ABNORMAL [None]
  - TREMOR [None]
